FAERS Safety Report 7090154-3 (Version None)
Quarter: 2010Q4

REPORT INFORMATION
  Report Type: 
  Country: None (occurrence: None)
  Receive Date: 20101104
  Receipt Date: 20101104
  Transmission Date: 20110411
  Serious: No
  Sender: FDA-Public Use
  Company Number: None

PATIENT
  Sex: Female
  Weight: 84.369 kg

DRUGS (2)
  1. CITALOPRAM HYDROBROMIDE [Suspect]
     Indication: ANXIETY DISORDER
     Dosage: 20 MG 1/2 QD PO
     Route: 048
     Dates: start: 20100909, end: 20101008
  2. CITALOPRAM HYDROBROMIDE [Suspect]
     Indication: ANXIETY DISORDER
     Dosage: 20MG 1 1/2 QD PO
     Route: 048
     Dates: start: 20101008, end: 20101022

REACTIONS (1)
  - THERAPEUTIC PRODUCT INEFFECTIVE [None]
